FAERS Safety Report 7130921-0 (Version None)
Quarter: 2010Q4

REPORT INFORMATION
  Report Type: 
  Country: None (occurrence: None)
  Receive Date: 20101101
  Receipt Date: 20100818
  Transmission Date: 20110411
  Serious: Yes (Other)
  Sender: FDA-Public Use
  Company Number: AMAG201000328

PATIENT
  Age: 86 Year
  Sex: Male
  Weight: 49.4 kg

DRUGS (7)
  1. FERAHEME [Suspect]
     Indication: IRON DEFICIENCY ANAEMIA
     Dosage: 510 MG, SINGLE, INTRAVENOUS
     Route: 042
     Dates: start: 20100817, end: 20100817
  2. ANTIHYPERTENSIVES (^BLOOD PRESSURE MEDS^) [Concomitant]
  3. LASIX (FUROSEMDIE SODIUM) [Concomitant]
  4. ISOSORBIDE (ISOSORBIDE) [Concomitant]
  5. ALLOPURINOL [Concomitant]
  6. COREG [Concomitant]
  7. CALCITROL (CALCIUM CARBONATE, ERGOCALCIFEROL, RETINOL) [Concomitant]

REACTIONS (1)
  - HYPERSENSITIVITY [None]
